FAERS Safety Report 8136216-0 (Version None)
Quarter: 2012Q1

REPORT INFORMATION
  Report Type: 
  Country: None (occurrence: None)
  Receive Date: 20120214
  Receipt Date: 20120202
  Transmission Date: 20120608
  Serious: Yes (Life-Threatening, Hospitalization, Other)
  Sender: FDA-Public Use
  Company Number: DE-TEVA-320692GER

PATIENT
  Age: 82 Year
  Sex: Female
  Weight: 67 kg

DRUGS (3)
  1. IBUPROFEN [Suspect]
     Route: 048
     Dates: start: 20110420, end: 20111108
  2. FUROSEMIDE [Suspect]
     Route: 048
     Dates: start: 20100401, end: 20111108
  3. CLINDAMYCIN [Suspect]
     Indication: CELLULITIS
     Dosage: 1800 MILLIGRAM;
     Route: 048
     Dates: start: 20110914, end: 20110930

REACTIONS (1)
  - RENAL FAILURE ACUTE [None]
